FAERS Safety Report 23352506 (Version 1)
Quarter: 2023Q4

REPORT INFORMATION
  Report Type: Spontaneous
  Country: BE (occurrence: BE)
  Receive Date: 20231229
  Receipt Date: 20231229
  Transmission Date: 20240110
  Serious: Yes (Hospitalization, Disabling, Other)
  Sender: FDA-Public Use
  Company Number: BE-TEVA-VS-3134316

PATIENT
  Age: 36 Year
  Weight: 70 kg

DRUGS (1)
  1. COPAXONE [Suspect]
     Active Substance: GLATIRAMER ACETATE
     Indication: Multiple sclerosis
     Dosage: TIME INTERVAL: 0.33333333 WEEKS: DOSAGE: 40 MG/ML
     Route: 065
     Dates: start: 20160225

REACTIONS (2)
  - Fistula [Recovered/Resolved]
  - Pilonidal disease [Recovered/Resolved]

NARRATIVE: CASE EVENT DATE: 20210929
